FAERS Safety Report 4299911-X (Version None)
Quarter: 2004Q1

REPORT INFORMATION
  Report Type: 
  Country: None (occurrence: None)
  Receive Date: 20040218
  Receipt Date: 20040209
  Transmission Date: 20041129
  Serious: Yes (Death)
  Sender: FDA-Public Use
  Company Number: NL-JNJFOC-20030901714

PATIENT
  Sex: Female

DRUGS (1)
  1. DUROGESIC (TENTANYL) PATCH [Suspect]
     Indication: CANCER PAIN
     Dosage: 75 UG/HR, TRANSDERMAL
     Route: 062

REACTIONS (2)
  - APPLICATION SITE OEDEMA [None]
  - LYMPHOEDEMA [None]
